FAERS Safety Report 13288736 (Version 3)
Quarter: 2017Q1

REPORT INFORMATION
  Report Type: Spontaneous
  Country: PL (occurrence: PL)
  Receive Date: 20170302
  Receipt Date: 20170313
  Transmission Date: 20170428
  Serious: Yes (Other)
  Sender: FDA-Public Use
  Company Number: PL-GILEAD-2017-0260359

PATIENT
  Age: 66 Year
  Sex: Male
  Weight: 58 kg

DRUGS (16)
  1. COBICISTAT W/DARUNAVIR [Concomitant]
     Active Substance: COBICISTAT\DARUNAVIR ETHANOLATE
     Indication: HIV INFECTION
     Dosage: UNK
     Dates: start: 200803, end: 200807
  2. ATAZANAVIR W/RITONAVIR [Concomitant]
     Active Substance: ATAZANAVIR\RITONAVIR
     Dosage: UNK
     Dates: start: 201404, end: 201602
  3. TRUVADA [Suspect]
     Active Substance: EMTRICITABINE\TENOFOVIR DISOPROXIL FUMARATE
     Dosage: UNK
     Route: 065
     Dates: start: 201602
  4. FINASTERIDE. [Concomitant]
     Active Substance: FINASTERIDE
  5. LAMIVUDINE. [Concomitant]
     Active Substance: LAMIVUDINE
     Indication: HIV INFECTION
     Dosage: UNK
     Dates: start: 201003, end: 201404
  6. ATAZANAVIR W/RITONAVIR [Concomitant]
     Active Substance: ATAZANAVIR\RITONAVIR
     Indication: HIV INFECTION
     Dosage: UNK
     Dates: start: 200807, end: 201003
  7. SILDENAFIL. [Concomitant]
     Active Substance: SILDENAFIL
  8. LOPINAVIR/RITONAVIR RANBAXY [Concomitant]
     Indication: HIV INFECTION
     Dosage: UNK
     Dates: start: 200803, end: 200807
  9. TRUVADA [Suspect]
     Active Substance: EMTRICITABINE\TENOFOVIR DISOPROXIL FUMARATE
     Dosage: UNK
     Route: 065
     Dates: start: 201404, end: 201602
  10. PERINDOPRIL [Concomitant]
     Active Substance: PERINDOPRIL
  11. TRUVADA [Suspect]
     Active Substance: EMTRICITABINE\TENOFOVIR DISOPROXIL FUMARATE
     Dosage: UNK
     Route: 065
     Dates: start: 200807, end: 201003
  12. OMEPRAZOLE. [Concomitant]
     Active Substance: OMEPRAZOLE
     Indication: BARRETT^S OESOPHAGUS
  13. TAMSULOSINE [Concomitant]
     Active Substance: TAMSULOSIN HYDROCHLORIDE
  14. ATAZANAVIR W/RITONAVIR [Concomitant]
     Active Substance: ATAZANAVIR\RITONAVIR
     Dosage: UNK
     Dates: start: 201003, end: 201404
  15. TRUVADA [Suspect]
     Active Substance: EMTRICITABINE\TENOFOVIR DISOPROXIL FUMARATE
     Indication: HIV INFECTION
     Dosage: UNK
     Route: 065
     Dates: start: 200803, end: 200807
  16. VIREAD [Suspect]
     Active Substance: TENOFOVIR DISOPROXIL FUMARATE
     Indication: HIV INFECTION
     Dosage: UNK
     Route: 065
     Dates: start: 201003, end: 201404

REACTIONS (2)
  - Spinal compression fracture [Unknown]
  - Ankle fracture [Unknown]

NARRATIVE: CASE EVENT DATE: 201012
